FAERS Safety Report 10627081 (Version 1)
Quarter: 2014Q4

REPORT INFORMATION
  Report Type: Spontaneous
  Country: FR (occurrence: FR)
  Receive Date: 20141204
  Receipt Date: 20141204
  Transmission Date: 20150529
  Serious: Yes (Hospitalization)
  Sender: FDA-Public Use
  Company Number: FR-BRISTOL-MYERS SQUIBB COMPANY-21652938

PATIENT
  Age: 82 Year
  Sex: Female

DRUGS (3)
  1. DEROXAT [Interacting]
     Active Substance: PAROXETINE HYDROCHLORIDE
     Dosage: STRENGTH: 20 MG FILM-COATED TABLET
     Route: 048
  2. CORDARONE [Interacting]
     Active Substance: AMIODARONE HYDROCHLORIDE
     Dosage: 200 MG SCORED TABLET ?FIVE DAYS OUT OF SEVEN
     Route: 048
  3. COUMADINE [Suspect]
     Active Substance: WARFARIN SODIUM
     Dosage: STRENGTH: 2 MG SCORED TABLET ?1 TABLET AND 1 AND A HALF TABLETS ON ALTERNATE DAYS?LAST DOSE:2NOV14
     Route: 048

REACTIONS (5)
  - Peritoneal haemorrhage [Recovering/Resolving]
  - Fall [Recovering/Resolving]
  - Hepatic cancer [Recovering/Resolving]
  - Drug interaction [Unknown]
  - Peritonitis [Recovering/Resolving]

NARRATIVE: CASE EVENT DATE: 20141102
